FAERS Safety Report 10209528 (Version 2)
Quarter: 2014Q2

REPORT INFORMATION
  Report Type: Spontaneous
  Country: AU (occurrence: AU)
  Receive Date: 20140602
  Receipt Date: 20140603
  Transmission Date: 20141212
  Serious: Yes (Death, Hospitalization)
  Sender: FDA-Public Use
  Company Number: AU-ROCHE-1410608

PATIENT
  Age: 77 Year
  Sex: Female

DRUGS (4)
  1. LUCENTIS [Suspect]
     Indication: AGE-RELATED MACULAR DEGENERATION
     Dosage: LAST DOSE 17/DEC/2013
     Route: 050
     Dates: start: 20121101
  2. WARFARIN [Concomitant]
     Route: 065
     Dates: start: 20121101
  3. MACU-VISION (AUSTRALIA) [Concomitant]
     Route: 065
     Dates: start: 20121101
  4. VOLTAREN [Concomitant]
     Route: 065
     Dates: start: 20121101

REACTIONS (1)
  - Pulmonary embolism [Fatal]
